FAERS Safety Report 9893697 (Version 2)
Quarter: 2014Q3

REPORT INFORMATION
  Report Type: Spontaneous
  Country: CN (occurrence: CN)
  Receive Date: 20140213
  Receipt Date: 20140718
  Transmission Date: 20150326
  Serious: Yes (Hospitalization)
  Sender: FDA-Public Use
  Company Number: PHHY2014CN015954

PATIENT
  Sex: Male

DRUGS (2)
  1. GLIVEC [Suspect]
     Active Substance: IMATINIB MESYLATE
     Indication: RECTAL NEOPLASM
     Dosage: 300 MG, QD
     Route: 048
     Dates: start: 20140203, end: 20140203
  2. GLIVEC [Suspect]
     Active Substance: IMATINIB MESYLATE
     Dosage: 400 MG, QD
     Route: 048

REACTIONS (3)
  - Nasopharyngitis [Recovering/Resolving]
  - Nervous system disorder [Recovering/Resolving]
  - Chronic hepatitis B [Recovering/Resolving]

NARRATIVE: CASE EVENT DATE: 20140207
